FAERS Safety Report 18170299 (Version 1)
Quarter: 2020Q3

REPORT INFORMATION
  Report Type: Spontaneous
  Country: DE (occurrence: DE)
  Receive Date: 20200819
  Receipt Date: 20200819
  Transmission Date: 20201103
  Serious: Yes (Hospitalization, Other)
  Sender: FDA-Public Use
  Company Number: DE-MYLANLABS-2020M1071310

PATIENT
  Age: 71 Year
  Sex: Male

DRUGS (12)
  1. MACROGOL W/POTASSIUM CHLORIDE/SODIU/06401201/ [Concomitant]
     Dosage: UNK UNK, QD (1?0?0?0)
  2. TORASEMID [Concomitant]
     Active Substance: TORSEMIDE
     Dosage: 100 MILLIGRAM, QD (100 MG, 1?0?0?0)
  3. INSULIN LISPRO [Concomitant]
     Active Substance: INSULIN LISPRO
     Dosage: 20 IU, QD (INSULIN HUMALOG 50, 20 IE, 0?0?1?0)
  4. INSULIN LISPRO [Concomitant]
     Active Substance: INSULIN LISPRO
     Dosage: 15 IU, QD (INSULIN HUMALOG 25, 15 IE, 1?0?0?0)
  5. MELPERON [Concomitant]
     Active Substance: MELPERONE
     Dosage: 25 MILLIGRAM (25 MG, BEI BEDARF ZUR NACHT)
  6. ACETYLSALICYLSAEURE [Concomitant]
     Active Substance: ASPIRIN
     Dosage: 100 MILLIGRAM, QD (100 MG, 0?1?0?0)
  7. EZETIMIBE. [Concomitant]
     Active Substance: EZETIMIBE
     Dosage: 10 MILLIGRAM, QD (10 MG, 0?0?1?0)
  8. KALIUM VERLA [Concomitant]
     Active Substance: POTASSIUM CITRATE
     Dosage: UNK (NACH WERT)
  9. BISOPROLOL [Suspect]
     Active Substance: BISOPROLOL
     Indication: PRODUCT USED FOR UNKNOWN INDICATION
     Dosage: 2.5 MILLIGRAM, QD (2.5 MG, 1?0?0?0)
  10. MELATONIN [Concomitant]
     Active Substance: MELATONIN
     Dosage: 2 MILLIGRAM, QD (2 MG, 0?0?0?1)
  11. TAMSULOSIN [Concomitant]
     Active Substance: TAMSULOSIN
     Dosage: 0.4 MILLIGRAM, QD (0.4 MG, 0?0?1?0)
  12. ATORVASTATIN [Concomitant]
     Active Substance: ATORVASTATIN
     Dosage: 20 MILLIGRAM, QD (20 MG, 0?0?1?0)

REACTIONS (6)
  - Acute respiratory failure [Unknown]
  - Dyspnoea [Unknown]
  - General physical health deterioration [Unknown]
  - Oedema peripheral [Unknown]
  - Angina pectoris [Unknown]
  - Fatigue [Unknown]
